FAERS Safety Report 6895775-6 (Version None)
Quarter: 2010Q3

REPORT INFORMATION
  Report Type: 
  Country: None (occurrence: None)
  Receive Date: 20100802
  Receipt Date: 20100721
  Transmission Date: 20110219
  Serious: No
  Sender: FDA-Public Use
  Company Number: JP-PFIZER INC-2010083602

PATIENT
  Sex: Female

DRUGS (3)
  1. SELARA [Suspect]
     Indication: HYPERTENSION
     Dosage: 50 MG, 1X/DAY
     Route: 048
     Dates: start: 20100301
  2. FLUITRAN [Concomitant]
     Indication: HYPERTENSION
     Route: 048
  3. OLMESARTAN MEDOXOMIL [Concomitant]
     Indication: HYPERTENSION
     Route: 048

REACTIONS (1)
  - URINARY INCONTINENCE [None]
